FAERS Safety Report 15139463 (Version 2)
Quarter: 2018Q3

REPORT INFORMATION
  Report Type: Spontaneous
  Country: GB (occurrence: GB)
  Receive Date: 20180713
  Receipt Date: 20180918
  Transmission Date: 20181010
  Serious: Yes (Other)
  Sender: FDA-Public Use
  Company Number: PHHY2018GB040200

PATIENT
  Sex: Female
  Weight: 79.4 kg

DRUGS (1)
  1. ERELZI [Suspect]
     Active Substance: ETANERCEPT-SZZS
     Indication: PSORIASIS
     Dosage: 25 MG, BIW
     Route: 058
     Dates: start: 201803

REACTIONS (4)
  - Carpal tunnel syndrome [Recovered/Resolved]
  - Paraesthesia [Recovered/Resolved]
  - Sensory disturbance [Recovered/Resolved]
  - Peripheral swelling [Recovered/Resolved]
